FAERS Safety Report 11713452 (Version 1)
Quarter: 2015Q4

REPORT INFORMATION
  Report Type: Spontaneous
  Country: US (occurrence: US)
  Receive Date: 20151109
  Receipt Date: 20151109
  Transmission Date: 20160304
  Serious: Yes (Hospitalization)
  Sender: FDA-Public Use
  Company Number: US-ASTRAZENECA-2015SF08063

PATIENT
  Age: 17970 Day
  Sex: Female
  Weight: 77.1 kg

DRUGS (4)
  1. ADVAIR HFA [Concomitant]
     Active Substance: FLUTICASONE PROPIONATE\SALMETEROL XINAFOATE
     Indication: ASTHMA
     Route: 055
  2. SEROQUEL XR [Suspect]
     Active Substance: QUETIAPINE FUMARATE
     Indication: BIPOLAR II DISORDER
     Dosage: AS REQUIRED
     Route: 048
     Dates: start: 201510
  3. SEROQUEL XR [Suspect]
     Active Substance: QUETIAPINE FUMARATE
     Indication: BIPOLAR II DISORDER
     Dosage: 100MG IN THE MORNING AND 300MG AT NIGHT
     Route: 048
  4. VENTOLIN [Concomitant]
     Active Substance: ALBUTEROL SULFATE
     Indication: PROPHYLAXIS
     Route: 055

REACTIONS (10)
  - Headache [Unknown]
  - Decreased appetite [Unknown]
  - Anxiety [Not Recovered/Not Resolved]
  - Chest pain [Unknown]
  - Tremor [Unknown]
  - Agitation [Unknown]
  - Depression [Unknown]
  - Visual impairment [Unknown]
  - Hypersensitivity [Unknown]
  - Photosensitivity reaction [Unknown]

NARRATIVE: CASE EVENT DATE: 20151030
